FAERS Safety Report 9686039 (Version 2)
Quarter: 2013Q4

REPORT INFORMATION
  Report Type: Spontaneous
  Country: US (occurrence: US)
  Receive Date: 20131113
  Receipt Date: 20131113
  Transmission Date: 20140711
  Serious: No
  Sender: FDA-Public Use
  Company Number: US-ALLERGAN-1217632US

PATIENT
  Age: 76 Year
  Sex: Female

DRUGS (2)
  1. COMBIGAN[R] [Suspect]
     Indication: INTRAOCULAR PRESSURE INCREASED
     Dosage: UNK
     Route: 047
     Dates: end: 20120718
  2. ARIMIDEX [Concomitant]
     Indication: PRODUCT USED FOR UNKNOWN INDICATION

REACTIONS (2)
  - Dysstasia [Unknown]
  - Blood pressure decreased [Unknown]
